FAERS Safety Report 25333875 (Version 1)
Quarter: 2025Q2

REPORT INFORMATION
  Report Type: Spontaneous
  Country: FR (occurrence: FR)
  Receive Date: 20250520
  Receipt Date: 20250520
  Transmission Date: 20250716
  Serious: Yes (Life-Threatening, Other)
  Sender: CHEPLAPHARM
  Company Number: None

PATIENT
  Age: 24 Year
  Sex: Male

DRUGS (7)
  1. CLONAZEPAM [Suspect]
     Active Substance: CLONAZEPAM
     Indication: Insomnia
     Route: 048
  2. SUBUTEX [Suspect]
     Active Substance: BUPRENORPHINE HYDROCHLORIDE
     Indication: Drug intolerance
     Route: 048
  3. LYRICA [Suspect]
     Active Substance: PREGABALIN
     Route: 048
  4. LYRICA [Suspect]
     Active Substance: PREGABALIN
  5. COCAINE [Suspect]
     Active Substance: COCAINE
     Route: 045
     Dates: end: 20240706
  6. CANNABIS SATIVA SUBSP. INDICA TOP [Suspect]
     Active Substance: CANNABIS SATIVA SUBSP. INDICA TOP
     Route: 055
  7. TOBACCO LEAF [Suspect]
     Active Substance: TOBACCO LEAF

REACTIONS (12)
  - Toxicity to various agents [Recovering/Resolving]
  - Drug dependence [Recovering/Resolving]
  - Intentional self-injury [Recovering/Resolving]
  - Intentional product misuse [Recovering/Resolving]
  - Vomiting [Recovering/Resolving]
  - Constipation [Recovering/Resolving]
  - Feeding disorder [Recovering/Resolving]
  - Feeling cold [Recovering/Resolving]
  - Pain [Unknown]
  - Nausea [Unknown]
  - Product use in unapproved indication [Unknown]
  - Prescription drug used without a prescription [Unknown]
